FAERS Safety Report 5334601-3 (Version None)
Quarter: 2007Q2

REPORT INFORMATION
  Report Type: 
  Country: None (occurrence: None)
  Receive Date: 20070525
  Receipt Date: 20070523
  Transmission Date: 20071010
  Serious: Yes (Death)
  Sender: FDA-Public Use
  Company Number: HQWYE321023MAY07

PATIENT
  Sex: Female

DRUGS (1)
  1. PANTECTA [Suspect]
     Dosage: 40 MG EVERY 1 TOT
     Route: 048

REACTIONS (2)
  - DEATH [None]
  - DIZZINESS [None]
